FAERS Safety Report 15825604 (Version 2)
Quarter: 2019Q1

REPORT INFORMATION
  Report Type: Spontaneous
  Country: US (occurrence: US)
  Receive Date: 20190115
  Receipt Date: 20190118
  Transmission Date: 20190417
  Serious: Yes (Other)
  Sender: FDA-Public Use
  Company Number: US-RECKITT BENCKISER HEALTHCARE INT LIMITED-RB-80495-2019

PATIENT
  Age: 72 Year
  Sex: Female

DRUGS (2)
  1. DELSYM [Suspect]
     Active Substance: DEXTROMETHORPHAN
     Indication: PRODUCT USED FOR UNKNOWN INDICATION
     Dosage: UNK, SINGLE, FULL CUP
     Route: 065
     Dates: start: 20190107, end: 20190107
  2. SINEMET [Concomitant]
     Active Substance: CARBIDOPA\LEVODOPA
     Indication: PARKINSON^S DISEASE
     Dosage: UNK
     Route: 065

REACTIONS (7)
  - Throat tightness [Recovering/Resolving]
  - Insomnia [Not Recovered/Not Resolved]
  - Tremor [Recovering/Resolving]
  - Contraindicated product administered [Recovering/Resolving]
  - Paralysis [Recovering/Resolving]
  - Musculoskeletal stiffness [Recovering/Resolving]
  - Dysstasia [Recovering/Resolving]

NARRATIVE: CASE EVENT DATE: 201901
